FAERS Safety Report 9772810 (Version 1)
Quarter: 2013Q4

REPORT INFORMATION
  Report Type: Spontaneous
  Country: GB (occurrence: None)
  Receive Date: 20131217
  Receipt Date: 20131217
  Transmission Date: 20140711
  Serious: Yes (Other)
  Sender: FDA-Public Use
  Company Number: AUR-APL-2013-10239

PATIENT
  Age: 71 Year
  Sex: Female
  Weight: 52.2 kg

DRUGS (12)
  1. SERTRALINE [Suspect]
     Indication: PRODUCT USED FOR UNKNOWN INDICATION
     Dates: start: 20131031, end: 20131114
  2. ADIPINE MR (NIFEDIPINE) [Concomitant]
  3. CARBOMER 980 (CARBOMER) [Concomitant]
  4. CLOTRIMAZOLE (CLOTRIMAZOLE) [Concomitant]
  5. ERYTHROMYCIN (ERYTHROMYCIN) [Concomitant]
  6. FLUCLOXACILLIN (FLUCLOXACILLIN) [Concomitant]
  7. HYDROXYCHLOROQUINE SULFATE (HYDROXYCHLOROQUINE SULFATE) [Concomitant]
  8. INFLUENZA VIRUS (INFLUENZA VACCINE) [Concomitant]
  9. LORATIDINE [Concomitant]
  10. NAPROXEN (NAPROXEN) [Concomitant]
  11. OMEPRAZOLE (OMEPRAZOLE) [Concomitant]
  12. PHENOXYMETHYLPENICILLIN (PHENOXYMETHYLPENICILLIN) [Concomitant]

REACTIONS (3)
  - Vomiting [None]
  - Chest discomfort [None]
  - Palpitations [None]
